FAERS Safety Report 16186755 (Version 3)
Quarter: 2019Q2

REPORT INFORMATION
  Report Type: Report from Study
  Country: US (occurrence: US)
  Receive Date: 20190411
  Receipt Date: 20190626
  Transmission Date: 20190711
  Serious: No
  Sender: FDA-Public Use
  Company Number: PHEH2019US015459

PATIENT
  Sex: Female

DRUGS (3)
  1. ENTRESTO [Suspect]
     Active Substance: SACUBITRIL\VALSARTAN
     Dosage: 100 MG (49 MG SACUBITRIL, 51 MG VALSARTAN), UNK
     Route: 048
  2. INSULIN [Concomitant]
     Active Substance: INSULIN NOS
     Indication: PRODUCT USED FOR UNKNOWN INDICATION
     Route: 065
  3. ENTRESTO [Suspect]
     Active Substance: SACUBITRIL\VALSARTAN
     Indication: PRODUCT USED FOR UNKNOWN INDICATION
     Dosage: UNK
     Route: 048

REACTIONS (10)
  - Cyst [Unknown]
  - Bronchitis [Unknown]
  - Visual impairment [Unknown]
  - Nausea [Recovering/Resolving]
  - Hypotension [Unknown]
  - Eye swelling [Unknown]
  - Dizziness [Unknown]
  - Memory impairment [Unknown]
  - Asthenia [Unknown]
  - Hypersensitivity [Unknown]
